FAERS Safety Report 18054078 (Version 1)
Quarter: 2020Q3

REPORT INFORMATION
  Report Type: Spontaneous
  Country: BR (occurrence: BR)
  Receive Date: 20200722
  Receipt Date: 20200722
  Transmission Date: 20201103
  Serious: Yes (Congenital Anomaly, Other)
  Sender: FDA-Public Use
  Company Number: BR-LUPIN PHARMACEUTICALS INC.-2020-03566

PATIENT
  Sex: Female
  Weight: 2.85 kg

DRUGS (2)
  1. MISOPROSTOL TABLET [Suspect]
     Active Substance: MISOPROSTOL
     Dosage: 1 DOSAGE FORM, UNK
     Route: 064
  2. MISOPROSTOL TABLET [Suspect]
     Active Substance: MISOPROSTOL
     Indication: PRODUCT USED FOR UNKNOWN INDICATION
     Dosage: 1 DOSAGE FORM, UNK
     Route: 064

REACTIONS (2)
  - Foetal exposure during pregnancy [Unknown]
  - Craniosynostosis [Unknown]
